FAERS Safety Report 11065735 (Version 1)
Quarter: 2015Q2

REPORT INFORMATION
  Report Type: Spontaneous
  Country: TW (occurrence: TW)
  Receive Date: 20150425
  Receipt Date: 20150425
  Transmission Date: 20150821
  Serious: Yes (Congenital Anomaly)
  Sender: FDA-Public Use
  Company Number: TW-CIPLA LTD.-2015TW03254

PATIENT

DRUGS (1)
  1. TENOFOVIR DISOPROXIL FUMARATE [Suspect]
     Active Substance: TENOFOVIR DISOPROXIL FUMARATE
     Dosage: 300 MG, QD
     Route: 064

REACTIONS (1)
  - Polydactyly [Unknown]
